FAERS Safety Report 9805858 (Version 1)
Quarter: 2014Q1

REPORT INFORMATION
  Report Type: Spontaneous
  Country: JP (occurrence: JP)
  Receive Date: 20140109
  Receipt Date: 20140109
  Transmission Date: 20141002
  Serious: Yes (Hospitalization, Other)
  Sender: FDA-Public Use
  Company Number: JP-ELI_LILLY_AND_COMPANY-JP201312008168

PATIENT
  Age: 63 Year
  Sex: Female

DRUGS (3)
  1. ALIMTA [Suspect]
     Indication: LUNG ADENOCARCINOMA
     Dosage: UNK
     Route: 042
  2. CARBOPLATIN [Concomitant]
     Indication: LUNG ADENOCARCINOMA
  3. BEVACIZUMAB [Concomitant]
     Indication: LUNG ADENOCARCINOMA

REACTIONS (3)
  - Gastrointestinal perforation [Recovering/Resolving]
  - Intestinal obstruction [Recovering/Resolving]
  - Duodenal ulcer [Recovering/Resolving]
